FAERS Safety Report 16271775 (Version 1)
Quarter: 2019Q2

REPORT INFORMATION
  Report Type: Spontaneous
  Country: US (occurrence: US)
  Receive Date: 20190506
  Receipt Date: 20190506
  Transmission Date: 20190711
  Serious: No
  Sender: FDA-Public Use
  Company Number: US-DRREDDYS-USA/USA/19/0109771

PATIENT

DRUGS (1)
  1. BUPRENORPHINE AND NALOXONE SUBLINGUAL FILM 2 MG/0.5 MG AND 8MG/2MG [Suspect]
     Active Substance: BUPRENORPHINE\NALOXONE
     Indication: PRODUCT USED FOR UNKNOWN INDICATION
     Dosage: 8MG/2MG
     Route: 060
     Dates: start: 20190312

REACTIONS (7)
  - Product quality issue [Unknown]
  - Sneezing [Unknown]
  - Drug ineffective [Unknown]
  - Product solubility abnormal [Unknown]
  - Myalgia [Unknown]
  - Taste disorder [Unknown]
  - Headache [Unknown]

NARRATIVE: CASE EVENT DATE: 20190312
